FAERS Safety Report 9233355 (Version 2)
Quarter: 2013Q3

REPORT INFORMATION
  Report Type: Report from Study
  Country: CA (occurrence: CA)
  Receive Date: 20130416
  Receipt Date: 20130701
  Transmission Date: 20140515
  Serious: Yes (Hospitalization)
  Sender: FDA-Public Use
  Company Number: CA-ELI_LILLY_AND_COMPANY-CA201304002316

PATIENT
  Age: 85 Year
  Sex: Female
  Weight: 54 kg

DRUGS (18)
  1. TERIPARATIDE [Suspect]
     Indication: OSTEOPOROSIS
     Dosage: 20 UG, QD
     Route: 058
     Dates: start: 20120212, end: 20120212
  2. TERIPARATIDE [Suspect]
     Dosage: 20 UG, QD
     Route: 058
     Dates: start: 20120225, end: 20120820
  3. TERIPARATIDE [Suspect]
     Dosage: 20 UG, QD
     Route: 058
     Dates: start: 20120918, end: 20130102
  4. TERIPARATIDE [Suspect]
     Dosage: 20 UG, QD
     Route: 058
     Dates: start: 20130113, end: 20130207
  5. EPREX [Concomitant]
     Dosage: UNK, WEEKLY (1/W)
     Dates: start: 20110502
  6. CALCIUM [Concomitant]
     Dosage: UNK
     Dates: start: 201111
  7. VITAMIN D [Concomitant]
     Dosage: UNK
     Dates: start: 20111117
  8. MAGNESIUM [Concomitant]
     Dosage: UNK
     Dates: start: 20110917, end: 20120920
  9. ATASOL                             /00020001/ [Concomitant]
     Dosage: UNK
     Dates: start: 20110814
  10. LIPITOR [Concomitant]
     Dosage: UNK
     Dates: start: 20120911
  11. SYNTHROID [Concomitant]
     Dosage: UNK
     Dates: start: 20130213
  12. PANTOLOC                           /01263204/ [Concomitant]
     Dosage: UNK
     Dates: start: 20130120
  13. VITAMIN B12 [Concomitant]
     Dosage: UNK
     Dates: start: 20130120
  14. VITAMIN B6 [Concomitant]
  15. SENNA [Concomitant]
  16. CELEBREX [Concomitant]
     Dosage: UNK, PRN
  17. FOSAMAX [Concomitant]
     Dosage: UNK, UNKNOWN
     Route: 065
  18. BLOOD TRANSFUSION, AUXILIARY PRODUCTS [Concomitant]
     Dosage: UNK, UNKNOWN
     Route: 065
     Dates: start: 2010

REACTIONS (2)
  - Myelodysplastic syndrome [Unknown]
  - Drug dose omission [Recovered/Resolved]
